FAERS Safety Report 17870755 (Version 1)
Quarter: 2020Q2

REPORT INFORMATION
  Report Type: Spontaneous
  Country: US (occurrence: US)
  Receive Date: 20200607
  Receipt Date: 20200607
  Transmission Date: 20200714
  Serious: Yes (Other)
  Sender: FDA-Public Use
  Company Number: None

PATIENT
  Age: 56 Year
  Sex: Female
  Weight: 74.25 kg

DRUGS (1)
  1. AIMOVIG [Suspect]
     Active Substance: ERENUMAB-AOOE
     Indication: MIGRAINE
     Dosage: ?          QUANTITY:1 INJECTION(S);OTHER FREQUENCY:28 DAYS;OTHER ROUTE:INJECTION INTO STOMACH OR THIGH?

REACTIONS (6)
  - Fatigue [None]
  - Weight decreased [None]
  - Constipation [None]
  - Alopecia [None]
  - Anal fissure haemorrhage [None]
  - Weight increased [None]

NARRATIVE: CASE EVENT DATE: 20190101
